FAERS Safety Report 8953803 (Version 1)
Quarter: 2012Q4

REPORT INFORMATION
  Report Type: 
  Country: IT (occurrence: IT)
  Receive Date: 20121206
  Receipt Date: 20121206
  Transmission Date: 20130627
  Serious: Yes (Other)
  Sender: FDA-Public Use
  Company Number: IT-TEVA-374075ISR

PATIENT
  Age: 47 Year
  Sex: Male

DRUGS (3)
  1. METHOTREXATE [Suspect]
     Indication: RHEUMATOID ARTHRITIS
     Route: 065
  2. CICLOSPORIN [Suspect]
     Indication: RHEUMATOID ARTHRITIS
     Route: 065
  3. ETANERCEPT [Suspect]
     Indication: RHEUMATOID ARTHRITIS
     Dosage: 50 Milligram Daily;
     Route: 058
     Dates: start: 200803, end: 201104

REACTIONS (6)
  - Anaplastic large cell lymphoma T- and null-cell types [Unknown]
  - Movement disorder [Unknown]
  - Joint effusion [Unknown]
  - Erythema [Unknown]
  - Oedema [Unknown]
  - Pyrexia [Unknown]
